FAERS Safety Report 13144548 (Version 1)
Quarter: 2017Q1

REPORT INFORMATION
  Report Type: Spontaneous
  Country: HU (occurrence: HU)
  Receive Date: 20170124
  Receipt Date: 20170124
  Transmission Date: 20170428
  Serious: Yes (Other)
  Sender: FDA-Public Use
  Company Number: HU-009507513-1701HUN008392

PATIENT
  Age: 32 Year
  Sex: Female

DRUGS (1)
  1. DIPROPHOS [Suspect]
     Active Substance: BECLOMETHASONE DIPROPIONATE\BETAMETHASONE SODIUM PHOSPHATE
     Indication: INFLAMMATION
     Dosage: 1 ML, ONCE (INTERVAL REPORTED AS: TOTAL)
     Route: 065
     Dates: start: 201609, end: 201609

REACTIONS (1)
  - Depression [Recovered/Resolved]

NARRATIVE: CASE EVENT DATE: 20160915
